FAERS Safety Report 8708312 (Version 2)
Quarter: 2012Q4

REPORT INFORMATION
  Report Type: 
  Country: TH (occurrence: TH)
  Receive Date: 20120806
  Receipt Date: 20121018
  Transmission Date: 20130627
  Serious: Yes (Death, Hospitalization)
  Sender: FDA-Public Use
  Company Number: PHHY2012TH067222

PATIENT
  Age: 80 Year
  Sex: Male

DRUGS (2)
  1. ACLASTA [Suspect]
     Indication: OSTEOPOROSIS
     Dosage: 5 mg yearly
     Route: 042
  2. CALCIUM [Concomitant]

REACTIONS (4)
  - Death [Fatal]
  - Fall [Unknown]
  - Aphagia [Unknown]
  - Vomiting [Unknown]
